FAERS Safety Report 20350692 (Version 1)
Quarter: 2022Q1

REPORT INFORMATION
  Report Type: Spontaneous
  Country: CN (occurrence: None)
  Receive Date: 20220119
  Receipt Date: 20220119
  Transmission Date: 20220423
  Serious: Yes (Other)
  Sender: FDA-Public Use
  Company Number: 2022A023651

PATIENT
  Age: 59 Year
  Sex: Male
  Weight: 61 kg

DRUGS (1)
  1. IMFINZI [Suspect]
     Active Substance: DURVALUMAB
     Indication: Non-small cell lung cancer stage III
     Dosage: 620.0MG EVERY CYCLE
     Route: 042
     Dates: start: 20211030, end: 20211119

REACTIONS (1)
  - Immune-mediated lung disease [Unknown]
